FAERS Safety Report 5868406-1 (Version None)
Quarter: 2008Q3

REPORT INFORMATION
  Report Type: 
  Country: None (occurrence: None)
  Receive Date: 20080903
  Receipt Date: 20080825
  Transmission Date: 20090109
  Serious: Yes (Hospitalization, Other)
  Sender: FDA-Public Use
  Company Number: US-WYE-H05702608

PATIENT
  Sex: Female
  Weight: 70.9 kg

DRUGS (4)
  1. PREMARIN [Suspect]
     Indication: WITHDRAWAL BLEEDING IRREGULAR
     Route: 048
     Dates: start: 20050629, end: 20050801
  2. PREMARIN [Suspect]
     Indication: AMENORRHOEA
  3. CENTRUM [Concomitant]
     Indication: DRUG USE FOR UNKNOWN INDICATION
     Dosage: 1 DOSAGE FORM DAILY
     Route: 065
     Dates: start: 20050501
  4. DOXYCYCLINE [Concomitant]
     Indication: DRUG USE FOR UNKNOWN INDICATION
     Dosage: 200 MG DAILY DOSE
     Route: 065
     Dates: start: 20000101

REACTIONS (1)
  - HYDROCEPHALUS [None]
